APPROVED DRUG PRODUCT: EPIRUBICIN HYDROCHLORIDE
Active Ingredient: EPIRUBICIN HYDROCHLORIDE
Strength: 50MG/25ML (2MG/ML)
Dosage Form/Route: INJECTABLE;INJECTION
Application: A090266 | Product #001
Applicant: PHARMOBEDIENT CONSULTING LLC
Approved: Apr 15, 2011 | RLD: No | RS: No | Type: DISCN